FAERS Safety Report 6351957-3 (Version None)
Quarter: 2009Q3

REPORT INFORMATION
  Report Type: 
  Country: None (occurrence: None)
  Receive Date: 20090912
  Receipt Date: 20090622
  Transmission Date: 20100115
  Serious: No
  Sender: FDA-Public Use
  Company Number: US-ABBOTT-07P-163-0427169-00

PATIENT
  Sex: Male
  Weight: 63.56 kg

DRUGS (7)
  1. HUMIRA [Suspect]
     Indication: RHEUMATOID ARTHRITIS
     Route: 058
     Dates: start: 20070601
  2. HUMIRA [Suspect]
     Route: 058
     Dates: start: 20061101, end: 20070601
  3. PREDNISONE [Concomitant]
     Indication: DRUG USE FOR UNKNOWN INDICATION
  4. OXYCODONE [Concomitant]
     Indication: DRUG USE FOR UNKNOWN INDICATION
  5. URINARY INCONTINENCE MEDICATION [Concomitant]
     Indication: URINARY INCONTINENCE
  6. OXYGEN [Concomitant]
     Indication: CHRONIC OBSTRUCTIVE PULMONARY DISEASE
  7. OXYGEN [Concomitant]
     Indication: EMPHYSEMA

REACTIONS (2)
  - INCORRECT DOSE ADMINISTERED [None]
  - INJECTION SITE HAEMORRHAGE [None]
